FAERS Safety Report 9838550 (Version 2)
Quarter: 2014Q1

REPORT INFORMATION
  Report Type: Report from Study
  Country: US (occurrence: US)
  Receive Date: 20140123
  Receipt Date: 20140123
  Transmission Date: 20141002
  Serious: Yes (Other)
  Sender: FDA-Public Use
  Company Number: US-BRISTOL-MYERS SQUIBB COMPANY-19715515

PATIENT
  Age: 64 Year
  Sex: Female
  Weight: 54.42 kg

DRUGS (6)
  1. ERBITUX [Suspect]
     Indication: LUNG NEOPLASM MALIGNANT
     Dosage: 250MG/M2,10C00199A, 1MF354A,11MR13,18MR,25MR,1,8,15,22,29AR,6MY,13MY,20MY,20MY,28MY,4,10,17,24JUN
     Route: 042
     Dates: start: 20130311
  2. CARBOPLATIN [Suspect]
     Dosage: 1DF: 6AUC
     Route: 042
     Dates: start: 20130311, end: 201306
  3. TAXOL [Suspect]
     Route: 042
     Dates: start: 20130311, end: 201306
  4. AVASTIN [Suspect]
     Route: 042
  5. GABAPENTIN [Concomitant]
  6. LORAZEPAM [Concomitant]

REACTIONS (42)
  - Metastasis [Unknown]
  - Chronic obstructive pulmonary disease [Unknown]
  - Emphysema [Unknown]
  - Pain of skin [Unknown]
  - Hair growth abnormal [Unknown]
  - Nail disorder [Unknown]
  - Urinary tract infection [Unknown]
  - Hypomagnesaemia [Unknown]
  - Fatigue [Not Recovered/Not Resolved]
  - Peripheral sensory neuropathy [Unknown]
  - Alopecia [Unknown]
  - Dry skin [Unknown]
  - Dermatitis acneiform [Unknown]
  - Hyperglycaemia [Unknown]
  - Flank pain [Unknown]
  - Lacrimation increased [Unknown]
  - Diarrhoea [Unknown]
  - Arthralgia [Unknown]
  - Dizziness [Unknown]
  - Anxiety [Unknown]
  - Rhinitis allergic [Unknown]
  - Dyspnoea [Unknown]
  - Hypertension [Unknown]
  - Catheter site pain [Unknown]
  - Anaemia [Unknown]
  - Vision blurred [Unknown]
  - Nausea [Unknown]
  - Abdominal discomfort [Not Recovered/Not Resolved]
  - Muscular weakness [Unknown]
  - Myalgia [Unknown]
  - Cough [Unknown]
  - Constipation [Recovered/Resolved]
  - Neutropenic infection [Unknown]
  - Mucosal inflammation [Unknown]
  - Pyrexia [Recovered/Resolved]
  - Chills [Recovered/Resolved]
  - Pruritus [Unknown]
  - Insomnia [Unknown]
  - Headache [Recovered/Resolved]
  - Visual acuity reduced [Unknown]
  - Decreased appetite [Unknown]
  - Off label use [Unknown]
